FAERS Safety Report 10862255 (Version 2)
Quarter: 2015Q1

REPORT INFORMATION
  Report Type: Spontaneous
  Country: GR (occurrence: GR)
  Receive Date: 20150224
  Receipt Date: 20150310
  Transmission Date: 20150721
  Serious: Yes (Other)
  Sender: FDA-Public Use
  Company Number: GR-PFIZER INC-2015063229

PATIENT
  Age: 49 Year
  Sex: Male

DRUGS (4)
  1. PREGABALIN. [Suspect]
     Active Substance: PREGABALIN
     Indication: NEURALGIA
     Dosage: 75 MG, (1+2)
  2. PARACETAMOL, TRAMADOL [Suspect]
     Active Substance: ACETAMINOPHEN\TRAMADOL
     Indication: NEURALGIA
     Dosage: 1-3 DAILY, AS NEEDED
  3. DULOXETINE [Suspect]
     Active Substance: DULOXETINE
     Indication: NEURALGIA
     Dosage: 60 MG, 1X/DAY
  4. TRAMADOL [Suspect]
     Active Substance: TRAMADOL
     Indication: NEURALGIA
     Dosage: 100 MG, 2X/DAY

REACTIONS (3)
  - Gait disturbance [Unknown]
  - Muscle atrophy [Unknown]
  - Drug ineffective [Unknown]
